FAERS Safety Report 6817237-4 (Version None)
Quarter: 2010Q3

REPORT INFORMATION
  Report Type: 
  Country: None (occurrence: None)
  Receive Date: 20100706
  Receipt Date: 20100623
  Transmission Date: 20110219
  Serious: Yes (Other)
  Sender: FDA-Public Use
  Company Number: US-BAYER-201026582NA

PATIENT
  Age: 30 Year
  Sex: Female
  Weight: 76 kg

DRUGS (3)
  1. YASMIN [Suspect]
     Indication: ORAL CONTRACEPTION
     Route: 048
     Dates: start: 20050101, end: 20090101
  2. IBUPROFEN [Concomitant]
  3. ANTIBIOTICS [Concomitant]

REACTIONS (3)
  - ABDOMINAL PAIN [None]
  - DEPRESSION [None]
  - GALLBLADDER INJURY [None]
